FAERS Safety Report 16166980 (Version 1)
Quarter: 2019Q2

REPORT INFORMATION
  Report Type: Report from Study
  Country: US (occurrence: US)
  Receive Date: 20190408
  Receipt Date: 20190408
  Transmission Date: 20190711
  Serious: Yes (Hospitalization, Other)
  Sender: FDA-Public Use
  Company Number: US-BRISTOL-MYERS SQUIBB COMPANY-BMS-2019-033467

PATIENT
  Age: 73 Year
  Sex: Male
  Weight: 87.08 kg

DRUGS (1)
  1. NIVOLUMAB [Suspect]
     Active Substance: NIVOLUMAB
     Indication: HEPATOCELLULAR CARCINOMA
     Dosage: 80 MILLIGRAM, Q2WK
     Route: 042
     Dates: start: 20161128, end: 20161227

REACTIONS (3)
  - Keratitis [Recovering/Resolving]
  - Influenza [Recovering/Resolving]
  - Embolism [Recovering/Resolving]

NARRATIVE: CASE EVENT DATE: 20170123
